FAERS Safety Report 21898719 (Version 1)
Quarter: 2023Q1

REPORT INFORMATION
  Report Type: Spontaneous
  Country: US (occurrence: None)
  Receive Date: 20230120
  Receipt Date: 20230120
  Transmission Date: 20230417
  Serious: Yes (Other)
  Sender: FDA-Public Use
  Company Number: None

PATIENT
  Age: 77 Year
  Sex: Female

DRUGS (2)
  1. TEMODAR [Suspect]
     Active Substance: TEMOZOLOMIDE
     Indication: Follicular lymphoma
     Dosage: FREQUENCY : DAILY;?
     Route: 048
  2. TEMODAR [Suspect]
     Active Substance: TEMOZOLOMIDE

REACTIONS (2)
  - Off label use [None]
  - Follicular lymphoma [None]

NARRATIVE: CASE EVENT DATE: 20230120
